FAERS Safety Report 4477240-9 (Version None)
Quarter: 2004Q4

REPORT INFORMATION
  Report Type: 
  Country: None (occurrence: None)
  Receive Date: 20041018
  Receipt Date: 20041011
  Transmission Date: 20050328
  Serious: Yes (Life-Threatening)
  Sender: FDA-Public Use
  Company Number: US-MERCK-0410USA01728

PATIENT
  Age: 81 Year
  Sex: Female

DRUGS (2)
  1. LOTENSIN [Concomitant]
     Route: 065
  2. VIOXX [Suspect]
     Indication: ARTHRITIS
     Route: 048
     Dates: start: 20030101, end: 20040301

REACTIONS (1)
  - SILENT MYOCARDIAL INFARCTION [None]
